FAERS Safety Report 9064854 (Version 4)
Quarter: 2013Q2

REPORT INFORMATION
  Report Type: Spontaneous
  Country: JP (occurrence: JP)
  Receive Date: 20130213
  Receipt Date: 20130520
  Transmission Date: 20140414
  Serious: Yes (Death, Hospitalization)
  Sender: FDA-Public Use
  Company Number: JP-ELI_LILLY_AND_COMPANY-JP201302001134

PATIENT
  Age: 85 Year
  Sex: Male

DRUGS (2)
  1. FORTEO [Suspect]
     Dosage: UNK
     Route: 058
     Dates: start: 20130115, end: 20130131
  2. FORTEO [Suspect]
     Route: 058

REACTIONS (3)
  - Death [Fatal]
  - Hypoglycaemia [Unknown]
  - Pyrexia [Unknown]
